FAERS Safety Report 8957770 (Version 1)
Quarter: 2012Q4

REPORT INFORMATION
  Report Type: 
  Country: BR (occurrence: BR)
  Receive Date: 20121210
  Receipt Date: 20121210
  Transmission Date: 20130627
  Serious: Yes (Hospitalization)
  Sender: FDA-Public Use
  Company Number: BR-PFIZER INC-2012306435

PATIENT
  Age: 84 Year
  Sex: Female
  Weight: 54 kg

DRUGS (4)
  1. XALATAN [Suspect]
     Indication: GLAUCOMA
     Dosage: 6 ug, 1x/day (2 drops in each eye, at night)
     Route: 047
     Dates: start: 1997
  2. NATURETTI [Concomitant]
     Indication: CONSTIPATION
  3. OSCAL D [Concomitant]
     Indication: PREVENTION
  4. PRESSAT [Concomitant]
     Indication: HYPERTENSION

REACTIONS (2)
  - Cataract [Unknown]
  - Overdose [Not Recovered/Not Resolved]
